FAERS Safety Report 10215677 (Version 1)
Quarter: 2014Q2

REPORT INFORMATION
  Report Type: Spontaneous
  Country: US (occurrence: US)
  Receive Date: 20140604
  Receipt Date: 20140604
  Transmission Date: 20141212
  Serious: Yes (Other)
  Sender: FDA-Public Use
  Company Number: US-SHIRE-US201402603

PATIENT
  Age: 39 Year
  Sex: Female

DRUGS (2)
  1. VYVANSE [Suspect]
     Indication: ATTENTION DEFICIT/HYPERACTIVITY DISORDER
     Dosage: 140 MG, UNKNOWN
     Route: 048
  2. VYVANSE [Suspect]
     Dosage: 100 MG (70 MG AND 30 MG), AS REQ^D
     Route: 048
     Dates: start: 2014

REACTIONS (5)
  - Loss of consciousness [Unknown]
  - Blood pressure decreased [Unknown]
  - Amnesia [Unknown]
  - Overdose [Unknown]
  - Drug dose omission [Recovered/Resolved]
